FAERS Safety Report 12424670 (Version 2)
Quarter: 2016Q2

REPORT INFORMATION
  Report Type: Spontaneous
  Country: PT (occurrence: PT)
  Receive Date: 20160601
  Receipt Date: 20160608
  Transmission Date: 20160815
  Serious: Yes (Other)
  Sender: FDA-Public Use
  Company Number: PHHY2016PT072764

PATIENT
  Age: 47 Year
  Sex: Male

DRUGS (4)
  1. LATANOPROST. [Suspect]
     Active Substance: LATANOPROST
     Indication: OPEN ANGLE GLAUCOMA
     Dosage: UNK
     Route: 061
  2. BRIMONIDINE [Suspect]
     Active Substance: BRIMONIDINE TARTRATE
     Indication: OPEN ANGLE GLAUCOMA
     Dosage: UNK
     Route: 061
  3. BRINZOLAMIDE [Suspect]
     Active Substance: BRINZOLAMIDE
     Indication: OPEN ANGLE GLAUCOMA
     Dosage: UNK
     Route: 061
  4. TIMOLOL. [Suspect]
     Active Substance: TIMOLOL
     Indication: OPEN ANGLE GLAUCOMA
     Dosage: UNK
     Route: 061

REACTIONS (4)
  - Bacterial infection [Recovered/Resolved]
  - Corneal infection [Recovered/Resolved]
  - Ocular hyperaemia [Recovered/Resolved]
  - Eye pain [Recovered/Resolved]
